FAERS Safety Report 7982154-3 (Version None)
Quarter: 2011Q4

REPORT INFORMATION
  Report Type: 
  Country: None (occurrence: None)
  Receive Date: 20111212
  Receipt Date: 20111128
  Transmission Date: 20120403
  Serious: Yes (Death, Life-Threatening, Hospitalization)
  Sender: FDA-Public Use
  Company Number: B0740903A

PATIENT
  Age: 48 Year
  Sex: Female

DRUGS (1)
  1. LAMOTRIGINE [Suspect]
     Indication: INTENTIONAL OVERDOSE
     Dosage: 7.5 GRAM(S) / ORAL
     Route: 048

REACTIONS (10)
  - INTENTIONAL OVERDOSE [None]
  - BLOOD PH INCREASED [None]
  - PO2 DECREASED [None]
  - STATUS EPILEPTICUS [None]
  - OVERDOSE [None]
  - CIRCULATORY COLLAPSE [None]
  - HYPOXIC-ISCHAEMIC ENCEPHALOPATHY [None]
  - PULSE ABSENT [None]
  - TACHYCARDIA [None]
  - HYPERREFLEXIA [None]
